FAERS Safety Report 8702872 (Version 4)
Quarter: 2013Q4

REPORT INFORMATION
  Report Type: Spontaneous
  Country: US (occurrence: US)
  Receive Date: 20120803
  Receipt Date: 20131029
  Transmission Date: 20140711
  Serious: Yes (Hospitalization, Disabling, Other)
  Sender: FDA-Public Use
  Company Number: US-009507513-2009SP040437

PATIENT
  Sex: Female
  Weight: 92.99 kg

DRUGS (8)
  1. NUVARING [Suspect]
     Indication: CONTRACEPTION
     Dosage: UNK
     Route: 067
     Dates: start: 200605, end: 20060821
  2. NORVASC [Concomitant]
     Indication: PRODUCT USED FOR UNKNOWN INDICATION
     Dosage: 10 MG, QD
     Dates: start: 2000
  3. METICORTEN [Concomitant]
     Indication: RHEUMATOID ARTHRITIS
     Dosage: 10 MG, QD
     Dates: start: 2004
  4. NORVASC [Concomitant]
     Dosage: 10 MG, QD
  5. FOLIC ACID [Concomitant]
     Indication: PRODUCT USED FOR UNKNOWN INDICATION
     Dosage: 1 DF, QD
  6. DARVOCET-N [Concomitant]
     Indication: PAIN
     Dosage: UNK UNK, PRN
  7. METHOTREXATE [Concomitant]
     Indication: RHEUMATOID ARTHRITIS
     Dosage: 15 MG, QW
  8. ZOLOFT [Concomitant]
     Indication: PRODUCT USED FOR UNKNOWN INDICATION
     Dosage: 50 MG, QD

REACTIONS (26)
  - Disability [Unknown]
  - Pulmonary infarction [Unknown]
  - Vena cava thrombosis [Unknown]
  - Pulmonary embolism [Unknown]
  - Visual impairment [Unknown]
  - Menstrual disorder [Unknown]
  - Arthralgia [Unknown]
  - Dyspnoea [Unknown]
  - Lung disorder [Unknown]
  - Asthenia [Unknown]
  - Trichomoniasis [Unknown]
  - Pelvic inflammatory disease [Unknown]
  - Dyspareunia [Unknown]
  - Bronchitis [Unknown]
  - Pneumonia [Unknown]
  - Influenza [Unknown]
  - Gliosis [Unknown]
  - Cerebral ischaemia [Unknown]
  - Demyelination [Unknown]
  - Migraine [Unknown]
  - Vena cava filter insertion [Unknown]
  - C-reactive protein increased [Unknown]
  - Chest pain [Unknown]
  - Arthralgia [Unknown]
  - Pain in extremity [Unknown]
  - Dizziness postural [Unknown]
